FAERS Safety Report 14973229 (Version 1)
Quarter: 2018Q2

REPORT INFORMATION
  Report Type: Spontaneous
  Country: FI (occurrence: FI)
  Receive Date: 20180605
  Receipt Date: 20180605
  Transmission Date: 20180711
  Serious: Yes (Other)
  Sender: FDA-Public Use
  Company Number: FI-BAYER-2018-100346

PATIENT
  Age: 35 Year
  Sex: Female

DRUGS (4)
  1. PANADOL [PARACETAMOL] [Concomitant]
     Dosage: 1 G, PRN
     Dates: start: 20171215
  2. OPAMOX [Concomitant]
     Active Substance: OXAZEPAM
     Dosage: 15 MG, PRN
  3. LEPONEX [Suspect]
     Active Substance: CLOZAPINE
     Indication: SCHIZOPHRENIA
  4. YASMIN [Suspect]
     Active Substance: DROSPIRENONE\ETHINYL ESTRADIOL
     Dosage: UNK
     Dates: end: 20180404

REACTIONS (10)
  - Pyelitis [Recovered/Resolved]
  - Groin abscess [Not Recovered/Not Resolved]
  - Inflammation [Not Recovered/Not Resolved]
  - Psychotic disorder [Not Recovered/Not Resolved]
  - Arthritis [Recovering/Resolving]
  - Pyrexia [Not Recovered/Not Resolved]
  - Venous thrombosis [Recovering/Resolving]
  - White blood cell count increased [Recovered/Resolved]
  - C-reactive protein increased [Not Recovered/Not Resolved]
  - Tendonitis [Recovering/Resolving]

NARRATIVE: CASE EVENT DATE: 2016
